FAERS Safety Report 12646969 (Version 3)
Quarter: 2016Q3

REPORT INFORMATION
  Report Type: Report from Study
  Country: US (occurrence: US)
  Receive Date: 20160812
  Receipt Date: 20160909
  Transmission Date: 20161109
  Serious: Yes (Death, Other)
  Sender: FDA-Public Use
  Company Number: PHEH2016US020188

PATIENT
  Age: 76 Year
  Sex: Male
  Weight: 64 kg

DRUGS (1)
  1. EXJADE [Suspect]
     Active Substance: DEFERASIROX
     Indication: MYELODYSPLASTIC SYNDROME
     Dosage: 100 MG, QD
     Route: 048
     Dates: start: 20150916

REACTIONS (24)
  - Dyspnoea exertional [Unknown]
  - White blood cell count decreased [Unknown]
  - Red blood cell count decreased [Unknown]
  - Myelodysplastic syndrome [Fatal]
  - Haemoglobin decreased [Unknown]
  - Weight decreased [Unknown]
  - Blood glucose increased [Unknown]
  - Blood alkaline phosphatase increased [Unknown]
  - Serum ferritin increased [Unknown]
  - Iron binding capacity total decreased [Unknown]
  - Arthralgia [Unknown]
  - Aspartate aminotransferase increased [Unknown]
  - Platelet count decreased [Unknown]
  - Blood sodium increased [Unknown]
  - Blood calcium increased [Unknown]
  - Haematocrit decreased [Unknown]
  - Ecchymosis [Unknown]
  - Alanine aminotransferase increased [Unknown]
  - Asthenia [Unknown]
  - Decreased appetite [Unknown]
  - Palpitations [Unknown]
  - Lymphocyte count decreased [Unknown]
  - Petechiae [Unknown]
  - Bradycardia [Unknown]

NARRATIVE: CASE EVENT DATE: 20151006
